FAERS Safety Report 19573163 (Version 1)
Quarter: 2021Q3

REPORT INFORMATION
  Report Type: Report from Study
  Country: None (occurrence: CO)
  Receive Date: 20210716
  Receipt Date: 20210716
  Transmission Date: 20211014
  Serious: Yes (Other)
  Sender: FDA-Public Use
  Company Number: CO-ABBVIE-21K-036-3992966-00

PATIENT
  Sex: Male
  Weight: 85 kg

DRUGS (2)
  1. HUMIRA [Suspect]
     Active Substance: ADALIMUMAB
     Indication: ANKYLOSING SPONDYLITIS
     Route: 058
     Dates: start: 20100712
  2. HUMIRA [Suspect]
     Active Substance: ADALIMUMAB
     Indication: ANKYLOSING SPONDYLITIS
     Route: 058

REACTIONS (12)
  - Bone disorder [Recovering/Resolving]
  - Spinal disorder [Recovering/Resolving]
  - Pain [Recovering/Resolving]
  - Osteoarthritis [Recovering/Resolving]
  - Hypertension [Recovering/Resolving]
  - Arthropathy [Recovering/Resolving]
  - Gait inability [Not Recovered/Not Resolved]
  - Crying [Recovering/Resolving]
  - Intervertebral disc protrusion [Recovering/Resolving]
  - Emotional distress [Recovering/Resolving]
  - Illness [Recovering/Resolving]
  - Depressed mood [Recovering/Resolving]

NARRATIVE: CASE EVENT DATE: 2018
